FAERS Safety Report 17613140 (Version 2)
Quarter: 2020Q2

REPORT INFORMATION
  Report Type: Spontaneous
  Country: AT (occurrence: AT)
  Receive Date: 20200402
  Receipt Date: 20200416
  Transmission Date: 20200713
  Serious: Yes (Hospitalization, Other)
  Sender: FDA-Public Use
  Company Number: AT-AMGEN-AUTSP2020052138

PATIENT
  Age: 54 Year
  Sex: Female

DRUGS (2)
  1. AIMOVIG [Suspect]
     Active Substance: ERENUMAB-AOOE
     Indication: PRODUCT USED FOR UNKNOWN INDICATION
     Dosage: 70 MG
     Route: 058
     Dates: start: 20200323
  2. AIMOVIG [Suspect]
     Active Substance: ERENUMAB-AOOE
     Dosage: 70 MG
     Route: 065
     Dates: start: 20191202

REACTIONS (9)
  - Respiratory tract infection [Unknown]
  - Cardiovascular disorder [Unknown]
  - Chest discomfort [Unknown]
  - Cold sweat [Unknown]
  - Cough [Unknown]
  - Chills [Unknown]
  - Dyspnoea [Unknown]
  - Decreased immune responsiveness [Unknown]
  - Tremor [Unknown]

NARRATIVE: CASE EVENT DATE: 20200319
